FAERS Safety Report 6447031-8 (Version None)
Quarter: 2009Q4

REPORT INFORMATION
  Report Type: 
  Country: None (occurrence: None)
  Receive Date: 20091119
  Receipt Date: 20091106
  Transmission Date: 20100525
  Serious: Yes (Other)
  Sender: FDA-Public Use
  Company Number: US-PFIZER INC-2009294942

PATIENT
  Sex: Male
  Weight: 117.93 kg

DRUGS (7)
  1. XANAX [Suspect]
     Indication: SCHIZOPHRENIA, PARANOID TYPE
     Dosage: 2 MG, 4X/DAY
     Dates: start: 20020101, end: 20091103
  2. XANAX [Suspect]
     Indication: BIPOLAR DISORDER
  3. XANAX [Suspect]
     Indication: PANIC DISORDER
  4. KLONOPIN [Concomitant]
  5. DEPAKOTE [Concomitant]
  6. PAXIL CR [Concomitant]
  7. LAMICTAL [Concomitant]

REACTIONS (3)
  - FACIAL PALSY [None]
  - ILL-DEFINED DISORDER [None]
  - WITHDRAWAL SYNDROME [None]
